FAERS Safety Report 12987770 (Version 1)
Quarter: 2016Q4

REPORT INFORMATION
  Report Type: Report from Study
  Country: None (occurrence: NL)
  Receive Date: 20161130
  Receipt Date: 20161130
  Transmission Date: 20170207
  Serious: Yes (Hospitalization)
  Sender: FDA-Public Use
  Company Number: NL-ABBVIE-16P-114-1793739-00

PATIENT
  Sex: Male

DRUGS (1)
  1. DUODOPA [Suspect]
     Active Substance: CARBIDOPA\LEVODOPA
     Indication: PARKINSON^S DISEASE
     Dosage: MD: 4.5, CD:  2.5, ED: 3, ND: 1.3
     Route: 050
     Dates: start: 20141124

REACTIONS (2)
  - Dopamine dysregulation syndrome [Not Recovered/Not Resolved]
  - Hyperkinesia [Not Recovered/Not Resolved]
